APPROVED DRUG PRODUCT: THIORIDAZINE HYDROCHLORIDE
Active Ingredient: THIORIDAZINE HYDROCHLORIDE
Strength: 100MG/ML
Dosage Form/Route: CONCENTRATE;ORAL
Application: A088229 | Product #001
Applicant: ACTAVIS MID ATLANTIC LLC
Approved: Aug 23, 1983 | RLD: No | RS: No | Type: DISCN